FAERS Safety Report 5949266-7 (Version None)
Quarter: 2008Q4

REPORT INFORMATION
  Report Type: 
  Country: None (occurrence: None)
  Receive Date: 20081021
  Receipt Date: 20071005
  Transmission Date: 20090506
  Serious: Yes (Other)
  Sender: FDA-Public Use
  Company Number: HQWYE956825MAY05

PATIENT
  Age: 60 Year
  Sex: Female
  Weight: 54.48 kg

DRUGS (5)
  1. PREMARIN [Suspect]
     Indication: MENOPAUSAL SYMPTOMS
     Dosage: .0625MG, ORAL
     Route: 048
     Dates: start: 19900101, end: 20000701
  2. MEDROXYPROGESTERONE [Suspect]
     Indication: MENOPAUSE
     Dosage: 2.5MG; 10MG, ORAL
     Route: 048
     Dates: start: 19900101, end: 20000701
  3. LEVOTHYROXINE SODIUM (LEVOTHYROXINE) [Concomitant]
  4. PAXIL [Concomitant]
  5. OXYBUTYNIN CHLORIDE [Concomitant]

REACTIONS (1)
  - BREAST CANCER [None]
